FAERS Safety Report 17047333 (Version 1)
Quarter: 2019Q4

REPORT INFORMATION
  Report Type: Report from Study
  Country: US (occurrence: US)
  Receive Date: 20191119
  Receipt Date: 20191119
  Transmission Date: 20200122
  Serious: Yes (Other)
  Sender: FDA-Public Use
  Company Number: US-ASTELLAS-2019US044104

PATIENT
  Sex: Male

DRUGS (1)
  1. ENZALUTAMIDE [Suspect]
     Active Substance: ENZALUTAMIDE
     Indication: HORMONE-REFRACTORY PROSTATE CANCER
     Route: 048
     Dates: end: 20191102

REACTIONS (5)
  - Posterior reversible encephalopathy syndrome [Unknown]
  - Swollen tongue [Unknown]
  - Swelling [Unknown]
  - Throat tightness [Unknown]
  - Dysgeusia [Unknown]
